FAERS Safety Report 5586055-X (Version None)
Quarter: 2007Q4

REPORT INFORMATION
  Report Type: 
  Country: None (occurrence: None)
  Receive Date: 20071205
  Receipt Date: 20061221
  Transmission Date: 20080405
  Serious: Yes (Other)
  Sender: FDA-Public Use
  Company Number: HQWYE920522DEC06

PATIENT
  Age: 47 Year
  Sex: Male
  Weight: 90.8 kg

DRUGS (1)
  1. EFFEXOR XR [Suspect]
     Indication: DEPRESSION
     Dosage: 37.5 MG 1 X PER 1 TOT, UNKNOWN

REACTIONS (10)
  - ANXIETY [None]
  - CHILLS [None]
  - DISTURBANCE IN ATTENTION [None]
  - DYSPHAGIA [None]
  - FACE OEDEMA [None]
  - FLUSHING [None]
  - HYPERHIDROSIS [None]
  - HYPERSENSITIVITY [None]
  - PANIC ATTACK [None]
  - TREMOR [None]
